FAERS Safety Report 6806322-9 (Version None)
Quarter: 2010Q2

REPORT INFORMATION
  Report Type: 
  Country: None (occurrence: None)
  Receive Date: 20100629
  Receipt Date: 20080809
  Transmission Date: 20101027
  Serious: No
  Sender: FDA-Public Use
  Company Number: US-PFIZER INC-2007107862

PATIENT
  Age: 52 Year
  Sex: Male

DRUGS (2)
  1. VIAGRA [Suspect]
     Indication: ERECTILE DYSFUNCTION
     Route: 048
     Dates: start: 20071219
  2. VIAGRA [Suspect]
     Indication: PROSTATE CANCER

REACTIONS (1)
  - NO THERAPEUTIC RESPONSE [None]
